FAERS Safety Report 23429638 (Version 1)
Quarter: 2024Q1

REPORT INFORMATION
  Report Type: Spontaneous
  Country: CA (occurrence: CA)
  Receive Date: 20240122
  Receipt Date: 20240122
  Transmission Date: 20240410
  Serious: Yes (Other)
  Sender: FDA-Public Use
  Company Number: CA-PFIZER INC-202400010705

PATIENT
  Age: 69 Year
  Sex: Male

DRUGS (2)
  1. SULFASALAZINE [Suspect]
     Active Substance: SULFASALAZINE
     Dosage: 1 DF
     Route: 065
  2. PURINETHOL [Concomitant]
     Active Substance: MERCAPTOPURINE
     Dosage: UNK

REACTIONS (5)
  - Malaise [Unknown]
  - Decreased appetite [Unknown]
  - Dizziness [Unknown]
  - Haematochezia [Unknown]
  - Disease progression [Unknown]

NARRATIVE: CASE EVENT DATE: 20240109
